FAERS Safety Report 4646697-2 (Version None)
Quarter: 2005Q2

REPORT INFORMATION
  Report Type: 
  Country: None (occurrence: None)
  Receive Date: 20050427
  Receipt Date: 20050111
  Transmission Date: 20051028
  Serious: Yes (Other)
  Sender: FDA-Public Use
  Company Number: US-GLAXOSMITHKLINE-A0543588A

PATIENT
  Sex: Male
  Weight: 97.7 kg

DRUGS (3)
  1. PAXIL [Suspect]
     Indication: ANXIETY
     Dosage: 30MG PER DAY
     Route: 048
     Dates: start: 20010314, end: 20010426
  2. KLONOPIN [Concomitant]
     Indication: ANXIETY
     Dosage: .5MG TWICE PER DAY
     Route: 048
     Dates: start: 20010404
  3. TRAZODONE HCL [Concomitant]
     Indication: INSOMNIA
     Route: 048
     Dates: start: 20010404

REACTIONS (12)
  - AGGRESSION [None]
  - ANXIETY [None]
  - DRUG WITHDRAWAL SYNDROME [None]
  - IMPULSIVE BEHAVIOUR [None]
  - INSOMNIA [None]
  - IRRITABILITY [None]
  - MANIA [None]
  - PAROSMIA [None]
  - PHYSICAL ASSAULT [None]
  - PSYCHOMOTOR HYPERACTIVITY [None]
  - SENSORY DISTURBANCE [None]
  - THINKING ABNORMAL [None]
